FAERS Safety Report 4456370-1 (Version None)
Quarter: 2004Q3

REPORT INFORMATION
  Report Type: 
  Country: None (occurrence: None)
  Receive Date: 20040917
  Receipt Date: 20040901
  Transmission Date: 20050211
  Serious: Yes (Hospitalization)
  Sender: FDA-Public Use
  Company Number: DSA_24962_2004

PATIENT
  Age: 71 Year
  Sex: Female

DRUGS (19)
  1. TEMESTA [Suspect]
     Indication: BIPOLAR DISORDER
     Dosage: 2.5 MG Q DAY PO
     Route: 048
     Dates: start: 20031101, end: 20040802
  2. TEMESTA [Suspect]
     Indication: DEPRESSION
     Dosage: 2.5 MG Q DAY PO
     Route: 048
     Dates: start: 20031101, end: 20040802
  3. BELOC ZOK [Suspect]
     Indication: CARDIAC FAILURE CONGESTIVE
     Dosage: 200 MG QD PO
     Route: 048
     Dates: start: 20031001
  4. DEROXAT [Suspect]
     Indication: BIPOLAR DISORDER
     Dosage: 30 MG QD PO
     Route: 048
     Dates: start: 20031201, end: 20040801
  5. DEROXAT [Suspect]
     Indication: DEPRESSION
     Dosage: 30 MG QD PO
     Route: 048
     Dates: start: 20031201, end: 20040801
  6. DEROXAT [Suspect]
     Indication: BIPOLAR DISORDER
     Dosage: 5 MG QD PO
     Route: 048
     Dates: start: 20040801
  7. DEROXAT [Suspect]
     Indication: DEPRESSION
     Dosage: 5 MG QD PO
     Route: 048
     Dates: start: 20040801
  8. SEROQUEL [Suspect]
     Indication: BIPOLAR DISORDER
     Dosage: 50 MG QD PO
     Route: 048
  9. SEROQUEL [Suspect]
     Indication: DEPRESSION
     Dosage: 50 MG QD PO
     Route: 048
  10. ZYPREXA [Suspect]
     Indication: BIPOLAR DISORDER
     Dosage: 10 MG QD PO
     Route: 048
     Dates: start: 20031001, end: 20040801
  11. ZYPREXA [Suspect]
     Indication: DEPRESSION
     Dosage: 10 MG QD PO
     Route: 048
     Dates: start: 20031001, end: 20040801
  12. ZYPREXA [Suspect]
     Indication: BIPOLAR DISORDER
     Dosage: 2.5 MG QD PO
     Route: 048
     Dates: start: 20040801
  13. ZYPREXA [Suspect]
     Indication: DEPRESSION
     Dosage: 2.5 MG QD PO
     Route: 048
     Dates: start: 20040801
  14. ELTROXIN [Concomitant]
  15. TOREM [Concomitant]
  16. CO-DIOVAN [Concomitant]
  17. PRAVASTATIN SODIUM [Concomitant]
  18. ALDACTONE [Concomitant]
  19. MARCOUMAR [Concomitant]

REACTIONS (7)
  - AGITATION [None]
  - ANTICHOLINERGIC SYNDROME [None]
  - CONFUSIONAL STATE [None]
  - DRUG INTERACTION [None]
  - DRUG LEVEL INCREASED [None]
  - MYDRIASIS [None]
  - TACHYCARDIA [None]
